FAERS Safety Report 4822701-3 (Version None)
Quarter: 2005Q4

REPORT INFORMATION
  Report Type: 
  Country: None (occurrence: None)
  Receive Date: 20051108
  Receipt Date: 20051104
  Transmission Date: 20060501
  Serious: Yes (Other)
  Sender: FDA-Public Use
  Company Number: US-GLAXOSMITHKLINE-A0581027A

PATIENT
  Age: 71 Year
  Sex: Female

DRUGS (5)
  1. NICORETTE [Suspect]
     Dates: start: 20031225
  2. NICORETTE [Suspect]
     Dates: start: 20031225
  3. LAMICTAL [Concomitant]
  4. ZYPREXA [Concomitant]
  5. ONE-A-DAY VITAMIN [Concomitant]

REACTIONS (3)
  - DEPENDENCE [None]
  - DRUG WITHDRAWAL SYNDROME [None]
  - NERVOUSNESS [None]
